FAERS Safety Report 6268466-2 (Version None)
Quarter: 2009Q3

REPORT INFORMATION
  Report Type: 
  Country: None (occurrence: None)
  Receive Date: 20090715
  Receipt Date: 20090702
  Transmission Date: 20100115
  Serious: Yes (Hospitalization, Other)
  Sender: FDA-Public Use
  Company Number: US-PFIZER INC-2009237511

PATIENT
  Sex: Male
  Weight: 93.44 kg

DRUGS (15)
  1. CHANTIX [Suspect]
     Indication: SMOKING CESSATION THERAPY
     Dosage: FREQUENCY: 2X/DAY, EVERY DAY;
     Dates: start: 20090601, end: 20090628
  2. DEPAKOTE [Concomitant]
     Indication: BIPOLAR DISORDER
     Dosage: 1500 MG, UNK
  3. SEROQUEL [Concomitant]
     Dosage: 100 MG, UNK
  4. XANAX [Concomitant]
     Dosage: 1 MG, UNK
  5. WELLBUTRIN [Concomitant]
     Dosage: 500 MG, UNK
  6. FOLIC ACID [Concomitant]
     Dosage: UNK
  7. FUROSEMIDE [Concomitant]
     Dosage: UNK
  8. PLAVIX [Concomitant]
     Dosage: UNK
  9. NAMENDA [Concomitant]
     Dosage: UNK
  10. KLOR-CON [Concomitant]
     Dosage: UNK
  11. LOVASTATIN [Concomitant]
     Dosage: UNK
  12. AMIODARONE [Concomitant]
     Dosage: UNK
  13. ADVAIR HFA [Concomitant]
     Dosage: UNK
  14. XOPENEX [Concomitant]
     Dosage: UNK
  15. PERCOCET [Concomitant]
     Dosage: UNK

REACTIONS (7)
  - ANGER [None]
  - CRYING [None]
  - DEPRESSION [None]
  - DRUG LEVEL DECREASED [None]
  - EATING DISORDER [None]
  - NERVOUSNESS [None]
  - SLEEP DISORDER [None]
